FAERS Safety Report 11628290 (Version 1)
Quarter: 2015Q4

REPORT INFORMATION
  Report Type: Spontaneous
  Country: US (occurrence: US)
  Receive Date: 20151014
  Receipt Date: 20151014
  Transmission Date: 20160304
  Serious: Yes (Death, Hospitalization)
  Sender: FDA-Public Use
  Company Number: US-MYLANLABS-2015M1034410

PATIENT

DRUGS (3)
  1. AMIODARONE [Suspect]
     Active Substance: AMIODARONE
     Indication: ATRIAL FIBRILLATION
     Dosage: UNK
     Route: 065
  2. DEXAMETHASONE. [Suspect]
     Active Substance: DEXAMETHASONE
     Dosage: 0.75MG ONCE DAILY
     Route: 065
  3. DEXAMETHASONE. [Suspect]
     Active Substance: DEXAMETHASONE
     Indication: THYROIDITIS
     Dosage: 6 MG/DAY, TAPERED TO 0.75MG ONCE DAILY
     Route: 065

REACTIONS (7)
  - Respiratory acidosis [Unknown]
  - Metabolic acidosis [Unknown]
  - Pneumocystis jirovecii pneumonia [Fatal]
  - Septic shock [Fatal]
  - Hyperthyroidism [Unknown]
  - Cardio-respiratory arrest [Fatal]
  - Acute kidney injury [Unknown]
